FAERS Safety Report 13228210 (Version 1)
Quarter: 2017Q1

REPORT INFORMATION
  Report Type: Spontaneous
  Country: US (occurrence: US)
  Receive Date: 20170213
  Receipt Date: 20170213
  Transmission Date: 20170428
  Serious: No
  Sender: FDA-Public Use
  Company Number: US-ROCHE-1848421

PATIENT
  Sex: Male

DRUGS (1)
  1. XOLAIR [Suspect]
     Active Substance: OMALIZUMAB
     Indication: ASTHMA
     Dosage: 1ST TIME
     Route: 058
     Dates: start: 20161012

REACTIONS (3)
  - Urinary incontinence [Unknown]
  - Fatigue [Unknown]
  - Splinter haemorrhages [Unknown]
